FAERS Safety Report 8648621 (Version 2)
Quarter: 2014Q1

REPORT INFORMATION
  Report Type: Spontaneous
  Country: US (occurrence: US)
  Receive Date: 20120703
  Receipt Date: 20140303
  Transmission Date: 20141002
  Serious: Yes (Other)
  Sender: FDA-Public Use
  Company Number: US-ARROW-2012-11265

PATIENT
  Age: 42 Year
  Sex: Male

DRUGS (1)
  1. TACROLIMUS (WATSON LABORATORIES) [Suspect]
     Indication: HEART TRANSPLANT
     Dosage: UNK
     Route: 065

REACTIONS (2)
  - Drug level fluctuating [Recovered/Resolved]
  - Food interaction [Recovered/Resolved]
